FAERS Safety Report 14655989 (Version 1)
Quarter: 2018Q1

REPORT INFORMATION
  Report Type: Spontaneous
  Country: ES (occurrence: ES)
  Receive Date: 20180319
  Receipt Date: 20180319
  Transmission Date: 20180509
  Serious: Yes (Other)
  Sender: FDA-Public Use
  Company Number: ES-JNJFOC-20180322110

PATIENT
  Age: 71 Year
  Sex: Male

DRUGS (1)
  1. INVEGA [Suspect]
     Active Substance: PALIPERIDONE
     Indication: PRODUCT USED FOR UNKNOWN INDICATION
     Route: 048
     Dates: start: 201508, end: 20160306

REACTIONS (2)
  - Extrapyramidal disorder [Recovering/Resolving]
  - Ocular discomfort [Recovering/Resolving]

NARRATIVE: CASE EVENT DATE: 20160305
